FAERS Safety Report 11080509 (Version 1)
Quarter: 2015Q2

REPORT INFORMATION
  Report Type: Spontaneous
  Country: GB (occurrence: GB)
  Receive Date: 20150501
  Receipt Date: 20150501
  Transmission Date: 20150821
  Serious: Yes (Other)
  Sender: FDA-Public Use
  Company Number: GB-ROCHE-1569826

PATIENT
  Age: 26 Year
  Sex: Male

DRUGS (2)
  1. DICLOFENAC [Suspect]
     Active Substance: DICLOFENAC
     Indication: BACK PAIN
     Dosage: INTENDED DURATION: 1 WEEK?FREQUENCY TIME: 1 DAYS
     Route: 065
  2. NAPROXEN. [Suspect]
     Active Substance: NAPROXEN
     Indication: BACK PAIN
     Route: 065

REACTIONS (5)
  - Dysuria [Unknown]
  - Contraindicated drug administered [Unknown]
  - Groin pain [Unknown]
  - Abdominal pain [Unknown]
  - Incontinence [Unknown]
